FAERS Safety Report 10749710 (Version 2)
Quarter: 2015Q1

REPORT INFORMATION
  Report Type: Spontaneous
  Country: US (occurrence: US)
  Receive Date: 20150129
  Receipt Date: 20150303
  Transmission Date: 20150721
  Serious: No
  Sender: FDA-Public Use
  Company Number: US-PFIZER INC-2015035576

PATIENT
  Age: 61 Year
  Sex: Female
  Weight: 66 kg

DRUGS (6)
  1. PREVACID [Suspect]
     Active Substance: LANSOPRAZOLE
     Dosage: 30 MG, UNK
  2. COREG [Suspect]
     Active Substance: CARVEDILOL
     Dosage: 3.125 MG, UNK
  3. ARMOUR THYROID [Suspect]
     Active Substance: THYROID, PORCINE\THYROID, UNSPECIFIED
     Dosage: 60 MG, UNK
  4. ZOVIRAX [Suspect]
     Active Substance: ACYCLOVIR
     Dosage: 800 MG, UNK
  5. DIGOXIN. [Suspect]
     Active Substance: DIGOXIN
     Dosage: 0.25 MG, UNK
  6. VENLAFAXINE HCL [Suspect]
     Active Substance: VENLAFAXINE HYDROCHLORIDE
     Dosage: 75 MG, UNK

REACTIONS (1)
  - Drug hypersensitivity [Unknown]
